FAERS Safety Report 7008645-X (Version None)
Quarter: 2010Q3

REPORT INFORMATION
  Report Type: 
  Country: None (occurrence: None)
  Receive Date: 20100922
  Receipt Date: 20100909
  Transmission Date: 20110219
  Serious: Yes (Hospitalization, Other)
  Sender: FDA-Public Use
  Company Number: US-ELI_LILLY_AND_COMPANY-US201009003602

PATIENT
  Sex: Female

DRUGS (6)
  1. PROZAC [Suspect]
     Indication: DEPRESSION
     Dosage: 20 MG, DAILY (1/D)
  2. CYMBALTA [Suspect]
     Indication: DEPRESSION
     Dosage: 60 MG, DAILY (1/D)
  3. CELEXA [Concomitant]
     Dosage: 40 MG, UNK
     Dates: start: 20100908
  4. CLONAZEPAM [Concomitant]
  5. CYCLOBENZAPRINE [Concomitant]
  6. HYDROCODONE [Concomitant]

REACTIONS (18)
  - ABNORMAL BEHAVIOUR [None]
  - ACTIVITIES OF DAILY LIVING IMPAIRED [None]
  - ANGER [None]
  - BACK PAIN [None]
  - CRYING [None]
  - DEPRESSION [None]
  - DRUG INEFFECTIVE [None]
  - DRUG WITHDRAWAL SYNDROME [None]
  - DYSPNOEA [None]
  - EUPHORIC MOOD [None]
  - INTENTIONAL SELF-INJURY [None]
  - INTERVERTEBRAL DISC PROTRUSION [None]
  - MORBID THOUGHTS [None]
  - PAIN IN EXTREMITY [None]
  - PALPITATIONS [None]
  - PARAESTHESIA [None]
  - PRESYNCOPE [None]
  - VERTIGO [None]
